FAERS Safety Report 6495801-2 (Version None)
Quarter: 2009Q4

REPORT INFORMATION
  Report Type: 
  Country: None (occurrence: None)
  Receive Date: 20091214
  Receipt Date: 20090813
  Transmission Date: 20100525
  Serious: No
  Sender: FDA-Public Use
  Company Number: US-BRISTOL-MYERS SQUIBB COMPANY-14740682

PATIENT
  Sex: Male

DRUGS (1)
  1. ABILIFY [Suspect]
     Dosage: INITIALLY 2MG THEN TITRATED TO 15MG.DOSE DECREASED TO 2MG AGAIN.
     Route: 048

REACTIONS (1)
  - DYSKINESIA [None]
